FAERS Safety Report 6982520-9 (Version None)
Quarter: 2010Q3

REPORT INFORMATION
  Report Type: 
  Country: None (occurrence: None)
  Receive Date: 20100914
  Receipt Date: 20100126
  Transmission Date: 20110219
  Serious: No
  Sender: FDA-Public Use
  Company Number: US-PFIZER INC-2010012203

PATIENT
  Sex: Male
  Weight: 81.6 kg

DRUGS (5)
  1. LYRICA [Suspect]
     Indication: CHEST PAIN
     Dosage: 150 MG, 2X/DAY
     Route: 048
     Dates: start: 20090101
  2. CYMBALTA [Concomitant]
     Indication: PAIN
     Dosage: 30 MG, 1X/DAY
     Route: 048
  3. PEPCID [Concomitant]
     Indication: GASTRIC DISORDER
     Dosage: 20 MG, 2X/DAY
  4. DICLOFENAC [Concomitant]
     Indication: PAIN
     Dosage: 50 MG, 3X/DAY
     Route: 048
  5. LORTAB [Concomitant]
     Indication: PAIN
     Dosage: [HYDROCODONE BITARTRATE 5MG]/[ACETAMINOPHEN 500MG]

REACTIONS (4)
  - ANGER [None]
  - DEPRESSION [None]
  - FATIGUE [None]
  - PAIN [None]
